FAERS Safety Report 11024717 (Version 1)
Quarter: 2015Q2

REPORT INFORMATION
  Report Type: Spontaneous
  Country: US (occurrence: None)
  Receive Date: 20150410
  Receipt Date: 20150410
  Transmission Date: 20150821
  Serious: No
  Sender: FDA-Public Use
  Company Number: 0073ADE

PATIENT
  Age: 75 Year
  Sex: Female

DRUGS (10)
  1. A-Z FOR WOMEN 50+ [Concomitant]
  2. CALTRATE (CA+ VIT B) [Concomitant]
  3. COQ10 [Concomitant]
     Active Substance: UBIDECARENONE
  4. SKIN AND NAILS [Concomitant]
  5. FISH OIL [Concomitant]
     Active Substance: FISH OIL
  6. AMLODIPINE [Concomitant]
     Active Substance: AMLODIPINE BESYLATE
  7. LEVOTHYROXINE [Concomitant]
     Active Substance: LEVOTHYROXINE
  8. CALCIUM [Concomitant]
     Active Substance: CALCIUM
  9. BINOSTO [Suspect]
     Active Substance: ALENDRONATE SODIUM
     Indication: OSTEOPOROSIS
     Dates: start: 20150125
  10. VALIUM [Concomitant]
     Active Substance: DIAZEPAM

REACTIONS (2)
  - Abdominal pain upper [None]
  - Inappropriate schedule of drug administration [None]

NARRATIVE: CASE EVENT DATE: 20150219
